FAERS Safety Report 22049808 (Version 1)
Quarter: 2023Q1

REPORT INFORMATION
  Report Type: Spontaneous
  Country: US (occurrence: None)
  Receive Date: 20230228
  Receipt Date: 20230228
  Transmission Date: 20230418
  Serious: No
  Sender: FDA-Public Use
  Company Number: None

PATIENT
  Age: 62 Year
  Sex: Female

DRUGS (1)
  1. DIMETHYL FUMARATE [Suspect]
     Active Substance: DIMETHYL FUMARATE
     Dosage: 240MG BID ORAL?
     Route: 048

REACTIONS (4)
  - SARS-CoV-2 test positive [None]
  - Sluggishness [None]
  - Multiple sclerosis [None]
  - Gait disturbance [None]

NARRATIVE: CASE EVENT DATE: 20230212
